FAERS Safety Report 23971627 (Version 1)
Quarter: 2024Q2

REPORT INFORMATION
  Report Type: Spontaneous
  Country: GB (occurrence: GB)
  Receive Date: 20240613
  Receipt Date: 20240613
  Transmission Date: 20240716
  Serious: Yes (Hospitalization)
  Sender: FDA-Public Use
  Company Number: GB-MHRA-TPP43889929C10098427YC1718116938854

PATIENT
  Age: 79 Year
  Sex: Female
  Weight: 89 kg

DRUGS (18)
  1. DOXYCYCLINE [Suspect]
     Active Substance: DOXYCYCLINE\DOXYCYCLINE HYCLATE
     Dosage: TWO NOW THEN ONE DAILY
     Dates: start: 20230731
  2. DEPO MEDRONE [Concomitant]
     Dosage: 100 MG USE AS DIRECTED - TWO NOW THEN ONE DAILY
     Dates: start: 20240410
  3. ASPIRIN [Concomitant]
     Active Substance: ASPIRIN
     Dosage: 1 DF, 1X/DAY
     Dates: start: 20221229
  4. BECLOMETHASONE DIPROPIONATE [Concomitant]
     Active Substance: BECLOMETHASONE DIPROPIONATE
     Dosage: TWO SPRAYS INTO EACH NOSTRIL TWICE DAILY
     Route: 045
     Dates: start: 20221229
  5. CARBOMER [Concomitant]
     Active Substance: CARBOMER
     Dosage: UNK, AS NEEDED
     Dates: start: 20221229
  6. BUTYLSCOPOLAMINE BROMIDE [Concomitant]
     Active Substance: BUTYLSCOPOLAMINE BROMIDE
     Dosage: 2 DF, 4X/DAY
     Dates: start: 20221229
  7. ISPAGHULA EXTRACT\PSYLLIUM [Concomitant]
     Active Substance: HERBALS\PLANTAGO OVATA SEED\PLANTAGO SEED
     Dosage: TAKE THE CONTENTS OF ONE SACHET UP TO TWICE A D...
     Dates: start: 20221229
  8. LANSOPRAZOLE [Concomitant]
     Active Substance: LANSOPRAZOLE
     Dosage: ONE TO BE TAKEN EACH MORNING
     Dates: start: 20221229
  9. ACETAMINOPHEN [Concomitant]
     Active Substance: ACETAMINOPHEN
     Dosage: TWO TO BE TAKEN EVERY 4-6 HOURS UP TO FOUR TIME...
     Dates: start: 20221229
  10. PROCHLORPERAZINE [Concomitant]
     Active Substance: PROCHLORPERAZINE
     Dosage: ONE TO BE TAKEN UP TO THREE TIMES A DAY
     Dates: start: 20221229
  11. SIMVASTATIN [Concomitant]
     Active Substance: SIMVASTATIN
     Indication: Ill-defined disorder
     Dosage: 1 DF, 1X/DAY
     Dates: start: 20221229
  12. CANDESARTAN [Concomitant]
     Active Substance: CANDESARTAN
     Indication: Ill-defined disorder
     Dosage: 1 DF, 1X/DAY
     Dates: start: 20230515
  13. PREDNISOLONE [Concomitant]
     Active Substance: PREDNISOLONE
     Indication: Ill-defined disorder
     Dosage: UNITS:/MG;TAKE 30MGS (6 TABLETS) FOR 10 DAYS
     Dates: start: 20230731
  14. IBUPROFEN [Concomitant]
     Active Substance: IBUPROFEN
     Indication: Ill-defined disorder
     Dosage: APPLY TO AFFECTED AREA(S) AND LIGHTLY RUB IN UN...
     Dates: start: 20230814
  15. BECLOMETHASONE DIPROPIONATE\FORMOTEROL FUMARATE\GLYCOPYRROLATE [Concomitant]
     Active Substance: BECLOMETHASONE DIPROPIONATE\FORMOTEROL FUMARATE\GLYCOPYRROLATE
     Indication: Ill-defined disorder
     Dosage: 2 DF, 2X/DAY
     Dates: start: 20230904
  16. FYBOGEL [Concomitant]
     Active Substance: HERBALS\PLANTAGO OVATA SEED
     Indication: Ill-defined disorder
     Dosage: DISSOLVE THE CONTENTS OF ONE SACHET IN WATER AN...
     Dates: start: 20231227
  17. ALBUTEROL SULFATE [Concomitant]
     Active Substance: ALBUTEROL SULFATE
     Indication: Ill-defined disorder
     Dosage: TWO PUFFS TO BE INHALED UP TO FOUR TIMES A DAY
     Dates: start: 20240110
  18. PEPTAC [CALCIUM CARBONATE;SODIUM ALGINATE;SODIUM BICARBONATE] [Concomitant]
     Indication: Ill-defined disorder
     Dosage: TAKE 10-20MLS AFTER MEALS AND AT BEDTIME IF REQ...
     Dates: start: 20240122

REACTIONS (3)
  - Dyspnoea [Recovered/Resolved]
  - Malaise [Recovered/Resolved]
  - Oedema [Unknown]

NARRATIVE: CASE EVENT DATE: 20240611
